FAERS Safety Report 13663778 (Version 2)
Quarter: 2017Q3

REPORT INFORMATION
  Report Type: Spontaneous
  Country: FR (occurrence: FR)
  Receive Date: 20170619
  Receipt Date: 20170714
  Transmission Date: 20171127
  Serious: Yes (Life-Threatening)
  Sender: FDA-Public Use
  Company Number: FR-ACCORD-052757

PATIENT
  Age: 75 Year
  Sex: Male

DRUGS (4)
  1. TARGRETIN [Concomitant]
     Active Substance: BEXAROTENE
     Indication: MYCOSIS FUNGOIDES
     Dates: start: 201610
  2. BENDAMUSTINE ACCORD [Suspect]
     Active Substance: BENDAMUSTINE
     Indication: MYCOSIS FUNGOIDES
     Dosage: 160 MG IN ONE SINGLE INTAKE
     Route: 042
     Dates: start: 20170410
  3. ADCETRIS [Suspect]
     Active Substance: BRENTUXIMAB VEDOTIN
     Indication: MYCOSIS FUNGOIDES
     Dosage: STRENGTH: 50 MG, 119 MG IN ONE SINGLE INTAKE
     Route: 042
     Dates: start: 20170410
  4. METHOTREXATE. [Concomitant]
     Active Substance: METHOTREXATE
     Indication: MYCOSIS FUNGOIDES
     Dates: start: 201605

REACTIONS (3)
  - Anaphylactic shock [Recovered/Resolved]
  - Off label use [Unknown]
  - Cytomegalovirus infection [Recovered/Resolved]

NARRATIVE: CASE EVENT DATE: 20170512
